FAERS Safety Report 20800918 (Version 2)
Quarter: 2022Q2

REPORT INFORMATION
  Report Type: Spontaneous
  Country: FR (occurrence: None)
  Receive Date: 20220509
  Receipt Date: 20220516
  Transmission Date: 20220721
  Serious: Yes (Other)
  Sender: FDA-Public Use
  Company Number: FR-Orion Corporation ORION PHARMA-TREX2022-0084

PATIENT
  Age: 9 Year
  Sex: Male
  Weight: 28 kg

DRUGS (2)
  1. METHOTREXATE [Suspect]
     Active Substance: METHOTREXATE
     Indication: Psoriasis
     Dosage: STRENGTH: 2.5 MG
     Route: 048
     Dates: end: 20220407
  2. METHOTREXATE [Suspect]
     Active Substance: METHOTREXATE
     Dosage: STRENGTH: 10MG, 4 TABLETS
     Route: 048
     Dates: start: 20220407

REACTIONS (7)
  - Abdominal pain [Recovering/Resolving]
  - Accidental overdose [Unknown]
  - Incorrect dose administered [Unknown]
  - Product dose confusion [Unknown]
  - Product administered to patient of inappropriate age [Unknown]
  - Thrombocytosis [Unknown]
  - Blood bicarbonate decreased [Unknown]

NARRATIVE: CASE EVENT DATE: 20220407
